FAERS Safety Report 8447060-9 (Version None)
Quarter: 2012Q2

REPORT INFORMATION
  Report Type: 
  Country: None (occurrence: None)
  Receive Date: 20120619
  Receipt Date: 20120613
  Transmission Date: 20120825
  Serious: Yes (Hospitalization)
  Sender: FDA-Public Use
  Company Number: PHHY2012FR051618

PATIENT
  Sex: Male

DRUGS (6)
  1. POTASSIUM CHLORIDE [Concomitant]
     Dosage: 2 DF, A DAY
  2. PENTOXIFYLLINE [Concomitant]
     Dosage: ONE TABLET AND THREE QUARTERS OF A TABLET PER DAY.
  3. LERCANIDIPINE [Concomitant]
  4. ACEBUTOLOL [Concomitant]
  5. ATORVASTATIN [Suspect]
     Indication: DYSLIPIDAEMIA
     Dosage: 1 DF, QD
     Route: 048
     Dates: start: 20120605, end: 20120612
  6. INDAPAMIDE [Concomitant]
     Dosage: 1 DF, QD

REACTIONS (2)
  - PURPURA [None]
  - PETECHIAE [None]
